FAERS Safety Report 5588290-3 (Version None)
Quarter: 2007Q4

REPORT INFORMATION
  Report Type: 
  Country: None (occurrence: None)
  Receive Date: 20071212
  Receipt Date: 20070418
  Transmission Date: 20080405
  Serious: Yes (Life-Threatening, Other)
  Sender: FDA-Public Use
  Company Number: USA-2007-0027101

PATIENT
  Sex: Male

DRUGS (2)
  1. OXYCONTIN [Suspect]
     Indication: DRUG USE FOR UNKNOWN INDICATION
     Dosage: SEE TEXT
  2. MORPHINE SULFATE [Concomitant]

REACTIONS (6)
  - COLD SWEAT [None]
  - DRUG DEPENDENCE [None]
  - FOOD CRAVING [None]
  - INCOHERENT [None]
  - MOVEMENT DISORDER [None]
  - RESPIRATORY ARREST [None]
